FAERS Safety Report 21084728 (Version 1)
Quarter: 2022Q3

REPORT INFORMATION
  Report Type: Spontaneous
  Country: US (occurrence: US)
  Receive Date: 20220714
  Receipt Date: 20220714
  Transmission Date: 20221027
  Serious: No
  Sender: FDA-Public Use
  Company Number: US-PFIZER INC-PV202200022782

PATIENT
  Age: 34 Year
  Sex: Female

DRUGS (1)
  1. CIBINQO [Suspect]
     Active Substance: ABROCITINIB
     Indication: Eczema
     Dosage: 1 DF, 1X/DAY (1.0 APPLICATION, QD, 30 DAYS, 30 TABLET(S))
     Route: 048

REACTIONS (3)
  - Off label use [Unknown]
  - Exfoliative rash [Unknown]
  - Skin plaque [Unknown]
